FAERS Safety Report 20928476 (Version 17)
Quarter: 2024Q1

REPORT INFORMATION
  Report Type: Spontaneous
  Country: CA (occurrence: CA)
  Receive Date: 20220607
  Receipt Date: 20240221
  Transmission Date: 20240410
  Serious: Yes (Other)
  Sender: FDA-Public Use
  Company Number: CA-CELLTRION INC.-2021CA012594

PATIENT

DRUGS (39)
  1. INFLECTRA [Suspect]
     Active Substance: INFLIXIMAB-DYYB
     Indication: Crohn^s disease
     Dosage: 5 MG/KG, EVERY 0, 2, 6 WEEKS, THEN EVERY 8 WEEKS
     Route: 042
     Dates: start: 202107
  2. INFLECTRA [Suspect]
     Active Substance: INFLIXIMAB-DYYB
     Dosage: 1 DF
     Route: 042
     Dates: start: 20210803
  3. INFLECTRA [Suspect]
     Active Substance: INFLIXIMAB-DYYB
     Dosage: 5 MG/KG, EVERY 0, 2, 6 WEEKS, THEN EVERY 8 WEEKS
     Route: 042
     Dates: start: 20210901
  4. INFLECTRA [Suspect]
     Active Substance: INFLIXIMAB-DYYB
     Dosage: 5 MG/KG,EVERY 0, 2, 6 WEEKS, THEN EVERY 8 WEEKS
     Route: 042
     Dates: start: 20211015
  5. INFLECTRA [Suspect]
     Active Substance: INFLIXIMAB-DYYB
     Dosage: 290 MG (SUPPOSED TO RECEIVE 270 MG), 5 MG/KG,EVERY 0, 2, 6 WEEKS, THEN EVERY 8 WEEKS
     Route: 042
     Dates: start: 20211207
  6. INFLECTRA [Suspect]
     Active Substance: INFLIXIMAB-DYYB
     Dosage: 5 MG/KG,EVERY 0, 2, 6 WEEKS, THEN EVERY 8 WEEKS
     Route: 042
     Dates: start: 20220330
  7. INFLECTRA [Suspect]
     Active Substance: INFLIXIMAB-DYYB
     Dosage: 5 MG/KG, EVERY 0, 2, 6 WEEKS, THEN EVERY 8 WEEKS
     Route: 042
     Dates: start: 20220527
  8. INFLECTRA [Suspect]
     Active Substance: INFLIXIMAB-DYYB
     Dosage: 5 MG/KG EVERY 0, 2, 6 WEEKS, THEN EVERY 8 WEEKS
     Route: 042
     Dates: start: 20220720
  9. INFLECTRA [Suspect]
     Active Substance: INFLIXIMAB-DYYB
     Dosage: 5 MG/KG, EVERY 6 WEEKS
     Route: 042
     Dates: start: 20220915
  10. INFLECTRA [Suspect]
     Active Substance: INFLIXIMAB-DYYB
     Dosage: 5 MG/KG, EVERY 6 WEEKS
     Route: 042
     Dates: start: 20221025
  11. INFLECTRA [Suspect]
     Active Substance: INFLIXIMAB-DYYB
     Dosage: 5 MG/KG, EVERY 6 WEEKS
     Route: 042
     Dates: start: 20221205
  12. INFLECTRA [Suspect]
     Active Substance: INFLIXIMAB-DYYB
     Dosage: 5 MG/KG, EVERY 6 WEEKS
     Route: 042
     Dates: start: 20230302
  13. INFLECTRA [Suspect]
     Active Substance: INFLIXIMAB-DYYB
     Dosage: 5 MG/KG, EVERY 6 WEEKS
     Route: 042
     Dates: start: 20230412
  14. INFLECTRA [Suspect]
     Active Substance: INFLIXIMAB-DYYB
     Dosage: 5 MG/KG, EVERY 6 WEEKS
     Route: 042
     Dates: start: 20230525
  15. INFLECTRA [Suspect]
     Active Substance: INFLIXIMAB-DYYB
     Dosage: 300MG (5MG/KG) EVERY 6 WEEKS
     Route: 042
     Dates: start: 20230706
  16. INFLECTRA [Suspect]
     Active Substance: INFLIXIMAB-DYYB
     Dosage: 5 MG/KG, EVERY 6 WEEKS
     Route: 042
     Dates: start: 20230817
  17. INFLECTRA [Suspect]
     Active Substance: INFLIXIMAB-DYYB
     Dosage: 295 MG (5 MG/KG), AFTER 6 WEEKS AND 1 DAY (PRESCRIBED EVERY 6 WEEKS)
     Route: 042
     Dates: start: 20230929
  18. INFLECTRA [Suspect]
     Active Substance: INFLIXIMAB-DYYB
     Dosage: 5 MG/KG, EVERY 6 WEEKS
     Route: 042
     Dates: start: 20231107
  19. INFLECTRA [Suspect]
     Active Substance: INFLIXIMAB-DYYB
     Dosage: 280MG (5MG/KG) AFTER 8 WEEKS AND 1 DAY (PRESCRIBED EVERY 6 WEEKS)
     Route: 042
     Dates: start: 20240103
  20. INFLECTRA [Suspect]
     Active Substance: INFLIXIMAB-DYYB
     Dosage: 5MG/KG, EVERY 6 WEEKS) (280MG, 5MG/KG, EVERY 6 WEEKS)
     Route: 042
     Dates: start: 20240213
  21. ACETAMINOPHEN [Concomitant]
     Active Substance: ACETAMINOPHEN
     Indication: Premedication
     Dosage: 1000 MG
     Route: 048
     Dates: start: 20210803, end: 20210803
  22. ACETAMINOPHEN [Concomitant]
     Active Substance: ACETAMINOPHEN
     Dosage: 1000 MG
     Route: 048
     Dates: start: 20221025, end: 20221025
  23. ACCUPRIL [Concomitant]
     Active Substance: QUINAPRIL HYDROCHLORIDE
     Dosage: 40 MG
     Route: 048
     Dates: start: 20220823
  24. ATENOLOL [Concomitant]
     Active Substance: ATENOLOL
     Dosage: 1 DF
     Route: 065
  25. ATENOLOL [Concomitant]
     Active Substance: ATENOLOL
     Dosage: 12.5 MG
     Route: 058
  26. ATENOLOL [Concomitant]
     Active Substance: ATENOLOL
     Dosage: 1 DF
     Route: 065
  27. CELEBREX [Concomitant]
     Active Substance: CELECOXIB
     Dosage: 10 MG
  28. METHOTREXATE [Concomitant]
     Active Substance: METHOTREXATE
     Dosage: 12.5 MG
     Route: 058
  29. MORPHINE [Concomitant]
     Active Substance: MORPHINE
     Dosage: 1 DF
     Route: 065
  30. PANTOPRAZOLE SODIUM [Concomitant]
     Active Substance: PANTOPRAZOLE SODIUM
     Dosage: 1 DF
     Route: 065
  31. POTASSIUM [Concomitant]
     Active Substance: POTASSIUM
     Dosage: 1 DF
  32. PREDNISONE [Concomitant]
     Active Substance: PREDNISONE
     Dosage: UNK
  33. PREDNISONE [Concomitant]
     Active Substance: PREDNISONE
     Dosage: 1 DF
  34. TIMOLOL [Concomitant]
     Active Substance: TIMOLOL
     Dosage: 1 DF
     Route: 065
  35. VENTOLIN [Concomitant]
     Active Substance: ALBUTEROL SULFATE
     Dosage: 1 DF
     Route: 065
  36. FOLIC ACID [Concomitant]
     Active Substance: FOLIC ACID
     Dosage: UNK
  37. FOLIC ACID [Concomitant]
     Active Substance: FOLIC ACID
     Dosage: 1 DF
  38. CHOLECALCIFEROL [Concomitant]
     Active Substance: CHOLECALCIFEROL
     Dosage: 1 DF
     Route: 065
  39. XANAX [Concomitant]
     Active Substance: ALPRAZOLAM
     Dosage: 1 DF
     Route: 065

REACTIONS (21)
  - Haemorrhage [Unknown]
  - Condition aggravated [Recovered/Resolved]
  - Illness [Unknown]
  - Productive cough [Not Recovered/Not Resolved]
  - Nasal congestion [Not Recovered/Not Resolved]
  - Vulvovaginal discomfort [Not Recovered/Not Resolved]
  - Dysuria [Unknown]
  - Anal fistula [Unknown]
  - Abdominal pain [Unknown]
  - Ear pain [Unknown]
  - Stomatitis [Unknown]
  - Immune-mediated adverse reaction [Unknown]
  - Anal fissure [Recovered/Resolved]
  - Oropharyngeal pain [Recovering/Resolving]
  - Infection [Not Recovered/Not Resolved]
  - Cough [Recovering/Resolving]
  - Blood pressure systolic increased [Unknown]
  - Paronychia [Not Recovered/Not Resolved]
  - Infusion site extravasation [Unknown]
  - Off label use [Unknown]
  - Inappropriate schedule of product administration [Unknown]

NARRATIVE: CASE EVENT DATE: 20210901
